FAERS Safety Report 16779774 (Version 1)
Quarter: 2019Q3

REPORT INFORMATION
  Report Type: Spontaneous
  Country: IT (occurrence: IT)
  Receive Date: 20190906
  Receipt Date: 20190906
  Transmission Date: 20191005
  Serious: Yes (Hospitalization)
  Sender: FDA-Public Use
  Company Number: IT-ASTRAZENECA-2019SF24820

PATIENT
  Age: 85 Year
  Sex: Male

DRUGS (6)
  1. QUETIAPINE. [Suspect]
     Active Substance: QUETIAPINE
     Indication: MENTAL DISORDER
     Route: 048
     Dates: start: 20190517, end: 20190530
  2. CARDICOR [Concomitant]
     Active Substance: BISOPROLOL
  3. FOLINA [Concomitant]
  4. ARIXTRA [Concomitant]
     Active Substance: FONDAPARINUX SODIUM
  5. LAEVOLAC [Concomitant]
     Active Substance: LACTULOSE
  6. FERLIXIT [Concomitant]
     Active Substance: SODIUM FERRIC GLUCONATE COMPLEX

REACTIONS (2)
  - Somnolence [Recovering/Resolving]
  - Sedation complication [Recovering/Resolving]

NARRATIVE: CASE EVENT DATE: 20190530
